FAERS Safety Report 23491843 (Version 2)
Quarter: 2025Q4

REPORT INFORMATION
  Report Type: Report from Study
  Country: EU (occurrence: EU)
  Receive Date: 20240207
  Receipt Date: 20251215
  Transmission Date: 20260117
  Serious: Yes (Hospitalization)
  Sender: TAKEDA
  Company Number: EU-TAKEDA-2023TUS003564

PATIENT
  Age: 12 Year
  Sex: Female

DRUGS (4)
  1. HUMAN IMMUNOGLOBULIN G\HYALURONIDASE RECOMBINANT HUMAN [Suspect]
     Active Substance: HUMAN IMMUNOGLOBULIN G\HYALURONIDASE (HUMAN RECOMBINANT)
     Indication: Secondary immunodeficiency
     Dosage: 20 GRAM, Q4WEEKS
     Dates: start: 20221122
  2. HUMAN IMMUNOGLOBULIN G\HYALURONIDASE RECOMBINANT HUMAN [Suspect]
     Active Substance: HUMAN IMMUNOGLOBULIN G\HYALURONIDASE (HUMAN RECOMBINANT)
     Indication: Immunodeficiency
     Dosage: 5 GRAM, Q4WEEKS
  3. HUMAN IMMUNOGLOBULIN G\HYALURONIDASE RECOMBINANT HUMAN [Suspect]
     Active Substance: HUMAN IMMUNOGLOBULIN G\HYALURONIDASE (HUMAN RECOMBINANT)
     Dosage: 25 GRAM, Q4WEEKS
  4. HUMAN IMMUNOGLOBULIN G\HYALURONIDASE RECOMBINANT HUMAN [Suspect]
     Active Substance: HUMAN IMMUNOGLOBULIN G\HYALURONIDASE (HUMAN RECOMBINANT)
     Dosage: 10 GRAM, Q4WEEKS

REACTIONS (3)
  - Influenza [Unknown]
  - Pyrexia [Unknown]
  - Febrile infection [Recovered/Resolved]

NARRATIVE: CASE EVENT DATE: 20230109
